FAERS Safety Report 8267593-8 (Version None)
Quarter: 2012Q2

REPORT INFORMATION
  Report Type: 
  Country: None (occurrence: None)
  Receive Date: 20120409
  Receipt Date: 20120402
  Transmission Date: 20120825
  Serious: Yes (Death, Hospitalization)
  Sender: FDA-Public Use
  Company Number: US-ELI_LILLY_AND_COMPANY-US201204001373

PATIENT
  Age: 78 Year
  Sex: Female

DRUGS (3)
  1. COUMADIN [Concomitant]
  2. CYMBALTA [Suspect]
     Indication: DEPRESSION
     Dosage: 30 MG, QD
     Dates: end: 20080828
  3. TYLENOL REGULAR [Concomitant]

REACTIONS (7)
  - HEPATIC NEOPLASM MALIGNANT [None]
  - PULMONARY EMBOLISM [None]
  - OCULAR ICTERUS [None]
  - DEMENTIA ALZHEIMER'S TYPE [None]
  - AGGRESSION [None]
  - DEMENTIA [None]
  - YELLOW SKIN [None]
